FAERS Safety Report 5924107-2 (Version None)
Quarter: 2008Q4

REPORT INFORMATION
  Report Type: 
  Country: None (occurrence: None)
  Receive Date: 20081020
  Receipt Date: 20080723
  Transmission Date: 20090506
  Serious: Yes (Other)
  Sender: FDA-Public Use
  Company Number: PHHY2008GR15781

PATIENT
  Sex: Male
  Weight: 110 kg

DRUGS (1)
  1. COPALIA [Suspect]
     Dosage: UNK

REACTIONS (6)
  - BURNING SENSATION [None]
  - GINGIVAL SWELLING [None]
  - LIP SWELLING [None]
  - SENSORY LOSS [None]
  - STOMATITIS [None]
  - SWOLLEN TONGUE [None]
